FAERS Safety Report 16103480 (Version 1)
Quarter: 2019Q1

REPORT INFORMATION
  Report Type: Spontaneous
  Country: US (occurrence: US)
  Receive Date: 20190322
  Receipt Date: 20190322
  Transmission Date: 20190418
  Serious: Yes (Hospitalization, Other)
  Sender: FDA-Public Use
  Company Number: US-009507513-1903USA006503

PATIENT
  Age: 22 Year
  Sex: Female
  Weight: 90.7 kg

DRUGS (1)
  1. NEXPLANON [Suspect]
     Active Substance: ETONOGESTREL
     Indication: CONTRACEPTION
     Dosage: 1 IMPLANT
     Route: 059
     Dates: start: 2017

REACTIONS (8)
  - Complication associated with device [Recovered/Resolved]
  - Complication of device removal [Not Recovered/Not Resolved]
  - Complication of device removal [Not Recovered/Not Resolved]
  - Anxiety [Unknown]
  - Keloid scar [Not Recovered/Not Resolved]
  - Device deployment issue [Not Recovered/Not Resolved]
  - Presyncope [Unknown]
  - General anaesthesia [Unknown]

NARRATIVE: CASE EVENT DATE: 20190313
